FAERS Safety Report 7514441-7 (Version None)
Quarter: 2011Q2

REPORT INFORMATION
  Report Type: 
  Country: None (occurrence: None)
  Receive Date: 20110526
  Receipt Date: 20110526
  Transmission Date: 20111010
  Serious: Yes (Other)
  Sender: FDA-Public Use
  Company Number: None

PATIENT
  Sex: Male
  Weight: 131.9967 kg

DRUGS (1)
  1. MINOXIDIL [Suspect]
     Indication: BLOOD PRESSURE
     Dosage: 10MG EVERY 12 HR
     Dates: start: 20090101, end: 20110501

REACTIONS (4)
  - WEIGHT INCREASED [None]
  - APPETITE DISORDER [None]
  - DYSPNOEA [None]
  - INSOMNIA [None]
